FAERS Safety Report 4708883-2 (Version None)
Quarter: 2005Q3

REPORT INFORMATION
  Report Type: 
  Country: None (occurrence: None)
  Receive Date: 20050705
  Receipt Date: 20050620
  Transmission Date: 20060218
  Serious: Yes (Life-Threatening, Hospitalization, Other)
  Sender: FDA-Public Use
  Company Number: 2005FR-00052

PATIENT
  Age: 15 Year
  Sex: Male
  Weight: 75 kg

DRUGS (2)
  1. FLUOXETINE [Suspect]
     Indication: DEPRESSION
     Dosage: 30MG, ORAL
     Route: 048
     Dates: start: 20050405
  2. DIAZEPAM [Concomitant]

REACTIONS (2)
  - OVERDOSE [None]
  - SUICIDAL IDEATION [None]
